FAERS Safety Report 6109574-6 (Version None)
Quarter: 2009Q1

REPORT INFORMATION
  Report Type: 
  Country: None (occurrence: None)
  Receive Date: 20090310
  Receipt Date: 20090306
  Transmission Date: 20090719
  Serious: Yes (Other)
  Sender: FDA-Public Use
  Company Number: US-JNJFOC-20090302000

PATIENT
  Sex: Female

DRUGS (3)
  1. RISPERDAL [Suspect]
     Indication: DRUG USE FOR UNKNOWN INDICATION
     Route: 048
  2. RISPERDAL CONSTA [Suspect]
     Indication: DRUG USE FOR UNKNOWN INDICATION
     Route: 030
  3. THYROID TAB [Concomitant]
     Indication: THYROID DISORDER
     Route: 048

REACTIONS (7)
  - ABDOMINAL DISTENSION [None]
  - SALIVARY HYPERSECRETION [None]
  - SCAR [None]
  - SKIN LESION [None]
  - TREMOR [None]
  - UNEVALUABLE EVENT [None]
  - WEIGHT INCREASED [None]
